FAERS Safety Report 5457420-6 (Version None)
Quarter: 2007Q3

REPORT INFORMATION
  Report Type: 
  Country: None (occurrence: None)
  Receive Date: 20070918
  Receipt Date: 20070802
  Transmission Date: 20080115
  Serious: Yes (Other)
  Sender: FDA-Public Use
  Company Number: US-ASTRAZENECA-2007UW03803

PATIENT
  Age: 239 Month
  Sex: Male
  Weight: 72.7 kg

DRUGS (5)
  1. SEROQUEL [Suspect]
     Indication: DEPRESSION
     Dosage: 25-500 MG
     Route: 048
     Dates: start: 20030106
  2. WELLBUTRIN [Concomitant]
  3. AMBIEN [Concomitant]
  4. LAMICTAL [Concomitant]
  5. LISINOPRIL [Concomitant]

REACTIONS (3)
  - BIPOLAR DISORDER [None]
  - PANCREATITIS CHRONIC [None]
  - VOMITING [None]
